FAERS Safety Report 9444145 (Version 1)
Quarter: 2013Q3

REPORT INFORMATION
  Report Type: Spontaneous
  Country: US (occurrence: None)
  Receive Date: 20130806
  Receipt Date: 20130806
  Transmission Date: 20140515
  Serious: No
  Sender: FDA-Public Use
  Company Number: None

PATIENT
  Age: 77 Year
  Sex: Female
  Weight: 63.5 kg

DRUGS (4)
  1. CIPROFLOXACIN [Suspect]
     Indication: INFECTION
     Dates: start: 20130727, end: 20130801
  2. TOPOROL [Concomitant]
  3. CAMADINE [Concomitant]
  4. FUROSEMIDE [Concomitant]

REACTIONS (3)
  - Excessive eye blinking [None]
  - Vision blurred [None]
  - Foreign body in eye [None]
